FAERS Safety Report 5738583-1 (Version None)
Quarter: 2008Q2

REPORT INFORMATION
  Report Type: 
  Country: None (occurrence: None)
  Receive Date: 20080515
  Receipt Date: 20080502
  Transmission Date: 20081010
  Serious: Yes (Hospitalization)
  Sender: FDA-Public Use
  Company Number: IN-AVENTIS-200814004GDDC

PATIENT
  Age: 63 Year
  Sex: Female
  Weight: 70 kg

DRUGS (7)
  1. PLACEBO [Suspect]
     Indication: NON-SMALL CELL LUNG CANCER
     Route: 042
     Dates: start: 20080430, end: 20080430
  2. DOCETAXEL [Suspect]
     Indication: NON-SMALL CELL LUNG CANCER
     Route: 042
     Dates: start: 20080430, end: 20080430
  3. AEROCORT [Concomitant]
     Indication: RESPIRATORY DISTRESS
     Route: 055
  4. LISINOPRIL [Concomitant]
     Indication: HYPERTENSION
  5. AMLODIPINE [Concomitant]
     Indication: HYPERTENSION
  6. COBADEX                            /00992201/ [Concomitant]
  7. CLOGEN [Concomitant]
     Indication: FUNGAL INFECTION

REACTIONS (1)
  - HYPERGLYCAEMIA [None]
